FAERS Safety Report 9684763 (Version 1)
Quarter: 2013Q4

REPORT INFORMATION
  Report Type: Report from Study
  Country: US (occurrence: US)
  Receive Date: 20131112
  Receipt Date: 20131112
  Transmission Date: 20140711
  Serious: Yes (Other)
  Sender: FDA-Public Use
  Company Number: US-ROCHE-1297507

PATIENT
  Sex: Female

DRUGS (12)
  1. LUCENTIS [Suspect]
     Indication: DIABETIC RETINOPATHY
     Route: 050
     Dates: start: 20130628, end: 20130628
  2. LUCENTIS [Suspect]
     Indication: DIABETIC RETINAL OEDEMA
     Route: 050
     Dates: start: 20130515
  3. AVASTIN [Suspect]
     Indication: PRODUCT USED FOR UNKNOWN INDICATION
     Dosage: THE DATE OF THE MOST RECENT DOSE IS 18/JAN/2010.
     Route: 065
  4. METFORMIN HYDROCHLORIDE [Concomitant]
     Route: 065
  5. VITAMIN D3 [Concomitant]
  6. JANUVIA [Concomitant]
  7. GLIMEPIRIDE [Concomitant]
  8. CLONIDINE [Concomitant]
  9. AMLODIPINE BESYLATE [Concomitant]
  10. LISINOPRIL [Concomitant]
  11. ASPIRIN [Concomitant]
     Route: 065
  12. CRESTOR [Concomitant]

REACTIONS (14)
  - Macular oedema [Unknown]
  - Retinal neovascularisation [Unknown]
  - Vision blurred [Unknown]
  - Visual impairment [Not Recovered/Not Resolved]
  - Cataract nuclear [Unknown]
  - Retinal neovascularisation [Unknown]
  - Retinal exudates [Unknown]
  - Aneurysm [Unknown]
  - Retinal exudates [Unknown]
  - Maculopathy [Unknown]
  - Retinal aneurysm [Unknown]
  - Retinal deposits [Unknown]
  - Retinal neovascularisation [Unknown]
  - Vitreous haemorrhage [Unknown]
